FAERS Safety Report 15542955 (Version 6)
Quarter: 2019Q1

REPORT INFORMATION
  Report Type: Report from Study
  Country: US (occurrence: US)
  Receive Date: 20181023
  Receipt Date: 20190111
  Transmission Date: 20190417
  Serious: Yes (Life-Threatening, Hospitalization, Other)
  Sender: FDA-Public Use
  Company Number: US-EMD SERONO-9048706

PATIENT
  Age: 67 Year
  Sex: Male
  Weight: 82 kg

DRUGS (7)
  1. OMEPRAZOLE. [Concomitant]
     Active Substance: OMEPRAZOLE
     Indication: PRODUCT USED FOR UNKNOWN INDICATION
     Route: 048
     Dates: start: 20180501
  2. AVELUMAB [Suspect]
     Active Substance: AVELUMAB
     Indication: THYMOMA
     Route: 042
     Dates: start: 20181004, end: 20181004
  3. LATANOPROST. [Concomitant]
     Active Substance: LATANOPROST
     Indication: PRODUCT USED FOR UNKNOWN INDICATION
     Dosage: 1 DROP EACH EYE
     Route: 047
     Dates: start: 20170101
  4. MAGNESIUM OXIDE/MAGNESIUM OXIDE [Concomitant]
     Indication: PRODUCT USED FOR UNKNOWN INDICATION
     Route: 048
     Dates: start: 20181010
  5. ASPIRIN                            /00002701/ [Concomitant]
     Active Substance: ASPIRIN
     Indication: PRODUCT USED FOR UNKNOWN INDICATION
     Dosage: 1-2 TAB
     Route: 048
     Dates: start: 20181003
  6. VITAMIN B12 [Concomitant]
     Active Substance: CYANOCOBALAMIN
     Indication: PRODUCT USED FOR UNKNOWN INDICATION
     Route: 048
     Dates: start: 20170101
  7. ALLOPURINOL. [Concomitant]
     Active Substance: ALLOPURINOL
     Indication: PRODUCT USED FOR UNKNOWN INDICATION
     Route: 048
     Dates: start: 20150501

REACTIONS (7)
  - Atrioventricular block complete [Recovered/Resolved]
  - Atrioventricular block first degree [Unknown]
  - Respiratory failure [Recovered/Resolved]
  - Lung infection [Recovered/Resolved]
  - Myositis [Recovering/Resolving]
  - Blood creatine phosphokinase increased [Recovered/Resolved]
  - Myocarditis [Unknown]

NARRATIVE: CASE EVENT DATE: 20181010
